FAERS Safety Report 5092272-8 (Version None)
Quarter: 2006Q3

REPORT INFORMATION
  Report Type: 
  Country: None (occurrence: None)
  Receive Date: 20060828
  Receipt Date: 20060828
  Transmission Date: 20061208
  Serious: Yes (Life-Threatening, Hospitalization)
  Sender: FDA-Public Use
  Company Number: None

PATIENT
  Sex: Male

DRUGS (3)
  1. KETEK [Suspect]
     Indication: COUGH
     Dosage: BID PO
     Route: 048
     Dates: start: 20060425, end: 20060427
  2. PREDNISONE TAB [Concomitant]
  3. ALBUTEROL [Concomitant]

REACTIONS (4)
  - ANOREXIA [None]
  - COUGH [None]
  - FEELING ABNORMAL [None]
  - HEPATITIS TOXIC [None]
